FAERS Safety Report 4844106-1 (Version None)
Quarter: 2005Q4

REPORT INFORMATION
  Report Type: 
  Country: None (occurrence: None)
  Receive Date: 20051202
  Receipt Date: 20051121
  Transmission Date: 20060501
  Serious: Yes (Other)
  Sender: FDA-Public Use
  Company Number: US-ROCHE-425763

PATIENT

DRUGS (2)
  1. ISOTRETINOIN [Suspect]
     Dates: start: 20040615, end: 20050115
  2. ORTHO EVRA [Concomitant]
     Indication: CONTRACEPTION
     Dates: end: 20050225

REACTIONS (2)
  - DRUG EXPOSURE DURING PREGNANCY [None]
  - INTRA-UTERINE DEATH [None]
